FAERS Safety Report 7272093-8 (Version None)
Quarter: 2011Q1

REPORT INFORMATION
  Report Type: 
  Country: None (occurrence: None)
  Receive Date: 20110131
  Receipt Date: 20110131
  Transmission Date: 20110831
  Serious: Yes (Other)
  Sender: FDA-Public Use
  Company Number: None

PATIENT
  Sex: Female
  Weight: 24.9 kg

DRUGS (2)
  1. GAMMAGARD LIQUID [Suspect]
     Indication: DERMATOSIS
     Dosage: 50GM/DOSE EVERY 4 WEEKS IV INFUSION (PER RN IN HOME OVER 5 HOURS)
     Route: 042
     Dates: start: 20101217
  2. GAMMAGARD LIQUID [Suspect]
     Indication: DERMATOSIS
     Dosage: 50GM/DOSE EVERY 4 WEEKS IV INFUSION (PER RN IN HOME OVER 5 HOURS)
     Route: 042
     Dates: start: 20101119

REACTIONS (3)
  - DYSPNOEA [None]
  - COUGH [None]
  - INFUSION RELATED REACTION [None]
